FAERS Safety Report 7105406-8 (Version None)
Quarter: 2010Q4

REPORT INFORMATION
  Report Type: 
  Country: None (occurrence: None)
  Receive Date: 20101116
  Receipt Date: 20101108
  Transmission Date: 20110411
  Serious: Yes (Hospitalization)
  Sender: FDA-Public Use
  Company Number: BR-ELI_LILLY_AND_COMPANY-BR201003002597

PATIENT
  Sex: Female
  Weight: 43 kg

DRUGS (8)
  1. GEMCITABINE HCL [Suspect]
     Indication: BREAST CANCER METASTATIC
     Dosage: 1000 MG/M2, OTHER
     Route: 042
     Dates: start: 20100105
  2. GEMCITABINE HCL [Suspect]
     Dosage: 750 MG/M2, OTHER
     Route: 042
     Dates: start: 20100224, end: 20100811
  3. VINFLUNINE [Suspect]
     Indication: BREAST CANCER METASTATIC
     Dosage: 320 MG/M2, OTHER
     Route: 065
     Dates: start: 20100105
  4. VINFLUNINE [Suspect]
     Dosage: 280 MG/M2, OTHER
     Route: 042
     Dates: start: 20100224, end: 20100811
  5. IBUPROFEN [Concomitant]
     Indication: HEADACHE
     Dosage: UNK, UNKNOWN
     Route: 065
     Dates: start: 20100211
  6. PREDNISONE [Concomitant]
     Indication: DECREASED APPETITE
     Dosage: UNK, UNKNOWN
     Route: 065
     Dates: start: 20100224
  7. DEXAMETHASONE [Concomitant]
     Indication: BREAST CANCER
     Dosage: UNK, UNKNOWN
     Route: 065
     Dates: start: 20100105, end: 20100811
  8. ONDANSETRON [Concomitant]
     Indication: BREAST CANCER
     Dosage: UNK, UNKNOWN
     Route: 065
     Dates: start: 20100105, end: 20100811

REACTIONS (4)
  - BACTERAEMIA [None]
  - DECREASED APPETITE [None]
  - HEADACHE [None]
  - PYELONEPHRITIS [None]
